FAERS Safety Report 14813277 (Version 2)
Quarter: 2018Q3

REPORT INFORMATION
  Report Type: Spontaneous
  Country: DE (occurrence: DE)
  Receive Date: 20180426
  Receipt Date: 20180721
  Transmission Date: 20181010
  Serious: Yes (Hospitalization, Other)
  Sender: FDA-Public Use
  Company Number: DE-ACCORD-066038

PATIENT
  Age: 70 Year
  Sex: Female

DRUGS (8)
  1. RISPERIDONE. [Suspect]
     Active Substance: RISPERIDONE
     Indication: PRODUCT USED FOR UNKNOWN INDICATION
     Dosage: 3MG DAILY FROM 18?NPV?2016 TO 19?NOV?2016
     Route: 048
     Dates: start: 20161101, end: 20161117
  2. ZOPICLONE [Concomitant]
     Active Substance: ZOPICLONE
     Dosage: DOSAGE FORM: UNSPECIFIED, SINCE LONG TIME
     Route: 048
  3. PANTOPRAZOLE [Concomitant]
     Active Substance: PANTOPRAZOLE
     Dosage: DOSAGE FORM: UNSPECIFIED, SINCE LONG TIME
     Route: 048
  4. QUETIAPINE. [Suspect]
     Active Substance: QUETIAPINE
     Indication: PRODUCT USED FOR UNKNOWN INDICATION
     Dosage: DOSAGE FORM: UNSPECIFIED
     Route: 048
     Dates: start: 20161005, end: 20161106
  5. REBOXETINE/REBOXETINE MESILATE [Concomitant]
     Dosage: DOSAGE FORM: UNSPECIFIED, SINCE LONG TIME
     Route: 048
  6. QUILONIUM R [Concomitant]
     Active Substance: LITHIUM CARBONATE
     Dosage: DOSAGE FORM: UNSPECIFIED, SINCE LONG TIME
     Route: 048
  7. SIMVASTATIN. [Concomitant]
     Active Substance: SIMVASTATIN
     Dosage: DOSAGE FORM: UNSPECIFIED, SINCE LONG TIME
     Route: 048
  8. ENALAPRIL [Concomitant]
     Active Substance: ENALAPRIL
     Dosage: DOSAGE FORM: UNSPECIFIED, SINCE LONG TIME
     Route: 048

REACTIONS (1)
  - Venous thrombosis [Recovered/Resolved]

NARRATIVE: CASE EVENT DATE: 20161101
